FAERS Safety Report 8070390-X (Version None)
Quarter: 2012Q1

REPORT INFORMATION
  Report Type: 
  Country: None (occurrence: None)
  Receive Date: 20120125
  Receipt Date: 20120117
  Transmission Date: 20120608
  Serious: Yes (Hospitalization)
  Sender: FDA-Public Use
  Company Number: FR-ROCHE-1031195

PATIENT
  Sex: Male
  Weight: 60 kg

DRUGS (1)
  1. PEGINTERFERON ALFA-2A [Suspect]
     Indication: HEPATITIS B
     Dosage: DATE OF LAST DOSE PRIOR TO SAE WAS ON 08/NOV/2010
     Route: 058
     Dates: start: 20100212

REACTIONS (1)
  - CORONARY ARTERY DISEASE [None]
